FAERS Safety Report 16395741 (Version 4)
Quarter: 2019Q3

REPORT INFORMATION
  Report Type: Report from Study
  Country: US (occurrence: US)
  Receive Date: 20190605
  Receipt Date: 20190930
  Transmission Date: 20191004
  Serious: Yes (Hospitalization, Other)
  Sender: FDA-Public Use
  Company Number: US-ACTELION-A-NJ2018-183057

PATIENT
  Age: 86 Year
  Sex: Male
  Weight: 88.44 kg

DRUGS (6)
  1. UPTRAVI [Suspect]
     Active Substance: SELEXIPAG
     Indication: PULMONARY ARTERIAL HYPERTENSION
     Dosage: 800 MCG, BID
     Route: 048
  2. COUMADIN [Concomitant]
     Active Substance: WARFARIN SODIUM
  3. TADALAFIL. [Concomitant]
     Active Substance: TADALAFIL
  4. UPTRAVI [Suspect]
     Active Substance: SELEXIPAG
     Dosage: 1400 MCG, BID
     Route: 048
  5. DILTIAZEM. [Concomitant]
     Active Substance: DILTIAZEM
  6. UPTRAVI [Suspect]
     Active Substance: SELEXIPAG
     Dosage: 1200 MCG, BID
     Route: 048

REACTIONS (22)
  - Cardiac pacemaker insertion [Unknown]
  - Gastrointestinal haemorrhage [Not Recovered/Not Resolved]
  - Head injury [Unknown]
  - Dyspnoea [Unknown]
  - Heart rate increased [Unknown]
  - Myalgia [Unknown]
  - Asthenia [Unknown]
  - Atrial fibrillation [Not Recovered/Not Resolved]
  - Dizziness [Unknown]
  - Scratch [Unknown]
  - Diarrhoea [Unknown]
  - Anaemia [Not Recovered/Not Resolved]
  - Hypotension [Unknown]
  - Drug intolerance [Unknown]
  - Drug ineffective [Unknown]
  - Haemoglobin decreased [Unknown]
  - Haematochezia [Not Recovered/Not Resolved]
  - Transfusion [Unknown]
  - Headache [Unknown]
  - Fall [Recovered/Resolved]
  - Chest pain [Unknown]
  - Loss of consciousness [Recovered/Resolved]

NARRATIVE: CASE EVENT DATE: 20190802
